FAERS Safety Report 5346046-0 (Version None)
Quarter: 2007Q2

REPORT INFORMATION
  Report Type: 
  Country: None (occurrence: None)
  Receive Date: 20070423
  Receipt Date: 20060425
  Transmission Date: 20071010
  Serious: Yes (Other)
  Sender: FDA-Public Use
  Company Number: WAES 0602USA04001

PATIENT
  Age: 25 Year
  Sex: Male

DRUGS (5)
  1. SINGULAIR [Suspect]
     Indication: RHINITIS ALLERGIC
     Dosage: 10 MG/DAILY/PO
     Route: 048
     Dates: start: 20060102, end: 20060101
  2. SINGULAIR [Suspect]
     Indication: VOCAL CORD POLYP
     Dosage: 10 MG/DAILY/PO
     Route: 048
     Dates: start: 20060102, end: 20060101
  3. NEXIUM [Concomitant]
  4. ZOCOR [Concomitant]
  5. INSULIN [Concomitant]

REACTIONS (2)
  - CONVULSION [None]
  - DRUG INEFFECTIVE [None]
